FAERS Safety Report 19503841 (Version 1)
Quarter: 2021Q3

REPORT INFORMATION
  Report Type: Spontaneous
  Country: US (occurrence: US)
  Receive Date: 20210707
  Receipt Date: 20210707
  Transmission Date: 20211014
  Serious: Yes (Other)
  Sender: FDA-Public Use
  Company Number: US-PFIZER INC-2021794748

PATIENT
  Age: 62 Year
  Sex: Male
  Weight: 136.08 kg

DRUGS (4)
  1. LYRICA [Suspect]
     Active Substance: PREGABALIN
     Dosage: UNK
  2. ATORVASTATIN [Concomitant]
     Active Substance: ATORVASTATIN
     Dosage: 20 MG
  3. DULOXETINE. [Concomitant]
     Active Substance: DULOXETINE
     Dosage: 30 MG
  4. PREGABALIN. [Suspect]
     Active Substance: PREGABALIN
     Dosage: UNK

REACTIONS (3)
  - Hallucination [Unknown]
  - Renal failure [Not Recovered/Not Resolved]
  - Blood magnesium decreased [Not Recovered/Not Resolved]

NARRATIVE: CASE EVENT DATE: 202106
